FAERS Safety Report 7371834-9 (Version None)
Quarter: 2011Q1

REPORT INFORMATION
  Report Type: 
  Country: None (occurrence: None)
  Receive Date: 20110324
  Receipt Date: 20110315
  Transmission Date: 20110831
  Serious: Yes (Congenital Anomaly, Other)
  Sender: FDA-Public Use
  Company Number: CA-B.I. PHARMACEUTICALS,INC./RIDGEFIELD-2010-CN-00152CN

PATIENT
  Sex: Male
  Weight: 3.6 kg

DRUGS (2)
  1. MICARDIS [Suspect]
     Indication: HYPERTENSION
     Dosage: 80 MG
     Route: 064
  2. CRESTOR [Suspect]
     Indication: HYPERLIPIDAEMIA
     Dosage: 10 MG
     Route: 064

REACTIONS (7)
  - IRRITABILITY [None]
  - GROWTH RETARDATION [None]
  - DYSMORPHISM [None]
  - MICROCEPHALY [None]
  - CONGENITAL BRAIN DAMAGE [None]
  - CONGENITAL ANOMALY [None]
  - DEVELOPMENTAL DELAY [None]
